FAERS Safety Report 6411868-1 (Version None)
Quarter: 2009Q4

REPORT INFORMATION
  Report Type: 
  Country: None (occurrence: None)
  Receive Date: 20091020
  Receipt Date: 20091007
  Transmission Date: 20100525
  Serious: Yes (Death, Hospitalization)
  Sender: FDA-Public Use
  Company Number: 2009AC000059

PATIENT
  Age: 62 Year
  Sex: Male
  Weight: 92.0802 kg

DRUGS (29)
  1. DIGOXIN [Suspect]
     Dosage: 0.125 MG; QD; PO
     Route: 048
     Dates: start: 20071101
  2. DIGOXIN [Suspect]
     Dosage: 0.125 MG; TIW; PO
     Route: 048
  3. AMBIEN [Concomitant]
  4. ASPIRIN [Concomitant]
  5. GABAPENTIN [Concomitant]
  6. NITROGLYCERIN [Concomitant]
  7. CLOTRIMAZOLE [Concomitant]
  8. LISINOPRIL [Concomitant]
  9. PREDNISONE TAB [Concomitant]
  10. NEXIUM [Concomitant]
  11. HYDROCHLOROQUINE [Concomitant]
  12. FUROSEMIDE [Concomitant]
  13. PROVENTIL-HFA [Concomitant]
  14. ALPRAZOLAM [Concomitant]
  15. GABAPENTIN [Concomitant]
  16. BONIVA [Concomitant]
  17. FLUCONAZOLE [Concomitant]
  18. AMOXICILLIN [Concomitant]
  19. TEMAZEPAM [Concomitant]
  20. OMEPRAZOLE [Concomitant]
  21. ZOLPIDEM [Concomitant]
  22. HYOSCYAMINE [Concomitant]
  23. CARVEDILOL [Concomitant]
  24. COREG [Concomitant]
  25. VANCOMYCIN [Concomitant]
  26. ZOSYN [Concomitant]
  27. OXYGEN [Concomitant]
  28. BIAXIN [Concomitant]
  29. VICODIN [Concomitant]

REACTIONS (27)
  - ABDOMINAL PAIN [None]
  - ABDOMINAL PAIN UPPER [None]
  - ANAEMIA [None]
  - ANAL SKIN TAGS [None]
  - ARTHRALGIA [None]
  - ATELECTASIS [None]
  - BRONCHITIS [None]
  - BUNDLE BRANCH BLOCK [None]
  - CARDIAC FAILURE [None]
  - COLITIS [None]
  - COLONIC POLYP [None]
  - DIVERTICULUM [None]
  - ECONOMIC PROBLEM [None]
  - FEBRILE NEUTROPENIA [None]
  - HAEMORRHOIDS [None]
  - HYPOAESTHESIA [None]
  - HYPOTENSION [None]
  - INJURY [None]
  - MITRAL VALVE INCOMPETENCE [None]
  - MUSCULOSKELETAL PAIN [None]
  - PLEURAL EFFUSION [None]
  - RECTAL HAEMORRHAGE [None]
  - SEPSIS [None]
  - SURGERY [None]
  - TRICUSPID VALVE INCOMPETENCE [None]
  - WEIGHT DECREASED [None]
  - WEIGHT INCREASED [None]
